FAERS Safety Report 9846649 (Version 2)
Quarter: 2014Q2

REPORT INFORMATION
  Report Type: Report from Study
  Country: BR (occurrence: BR)
  Receive Date: 20140127
  Receipt Date: 20140404
  Transmission Date: 20141212
  Serious: Yes (Other)
  Sender: FDA-Public Use
  Company Number: PHHY2014BR009772

PATIENT
  Age: 66 Year
  Sex: Male
  Weight: 80 kg

DRUGS (2)
  1. DIOVAN AMLO FIX [Suspect]
     Indication: HYPERTENSION
     Dosage: 1 DF(320/5MG), DAILY
     Route: 048
  2. MAGNUS//MORPHINE SULFATE [Suspect]
     Indication: DIABETES MELLITUS
     Dosage: UNK UKN, UNK

REACTIONS (4)
  - Cerebrovascular accident [Unknown]
  - Malaise [Unknown]
  - Infarction [Unknown]
  - Venous occlusion [Unknown]
